FAERS Safety Report 23963523 (Version 1)
Quarter: 2024Q2

REPORT INFORMATION
  Report Type: Spontaneous
  Country: US (occurrence: US)
  Receive Date: 20240611
  Receipt Date: 20240611
  Transmission Date: 20240716
  Serious: No
  Sender: FDA-Public Use
  Company Number: US-MYLANLABS-2024M1046810

PATIENT

DRUGS (1)
  1. GABAPENTIN [Suspect]
     Active Substance: GABAPENTIN
     Indication: Pruritus
     Dosage: 100 MILLIGRAM
     Route: 065

REACTIONS (3)
  - Eye movement disorder [Unknown]
  - Balance disorder [Unknown]
  - Off label use [Unknown]
